FAERS Safety Report 12692656 (Version 1)
Quarter: 2016Q3

REPORT INFORMATION
  Report Type: Spontaneous
  Country: US (occurrence: US)
  Receive Date: 20160829
  Receipt Date: 20160829
  Transmission Date: 20161109
  Serious: Yes (Death)
  Sender: FDA-Public Use
  Company Number: US-HORIZON-PRE-0254-2016

PATIENT
  Age: 75 Year
  Sex: Male

DRUGS (3)
  1. SOLU-MEDROL [Suspect]
     Active Substance: METHYLPREDNISOLONE SODIUM SUCCINATE
     Indication: TUBULOINTERSTITIAL NEPHRITIS
     Dosage: 500 MG INTRAVENOUS STEROID PULSE FOR 3 DAYS, INCREASED TO 140 MG TWICE A DAY
     Route: 042
  2. MYCOPHENOLATE MOFETIL. [Suspect]
     Active Substance: MYCOPHENOLATE MOFETIL
     Indication: TUBULOINTERSTITIAL NEPHRITIS
     Dosage: 1000 MG BID
  3. PREDNISONE. [Suspect]
     Active Substance: PREDNISONE
     Indication: TUBULOINTERSTITIAL NEPHRITIS
     Dosage: 60 MG DAILY, TAPER

REACTIONS (2)
  - Pseudomonas infection [Fatal]
  - Septic shock [Fatal]
